FAERS Safety Report 21337546 (Version 4)
Quarter: 2022Q4

REPORT INFORMATION
  Report Type: Spontaneous
  Country: US (occurrence: US)
  Receive Date: 20220915
  Receipt Date: 20221107
  Transmission Date: 20230112
  Serious: Yes (Hospitalization)
  Sender: FDA-Public Use
  Company Number: US-BIOVITRUM-2022US09301

PATIENT
  Age: 20 Year
  Sex: Male

DRUGS (3)
  1. KINERET [Suspect]
     Active Substance: ANAKINRA
     Indication: Rheumatoid arthritis
     Dates: start: 20220412
  2. KINERET [Suspect]
     Active Substance: ANAKINRA
     Dates: start: 20220412
  3. KINERET [Suspect]
     Active Substance: ANAKINRA
     Dates: start: 20220801

REACTIONS (9)
  - Autoinflammatory disease [Unknown]
  - COVID-19 [Unknown]
  - Limb injury [Unknown]
  - Malaise [Unknown]
  - Infection [Unknown]
  - Back injury [Unknown]
  - Injection site pain [Unknown]
  - Product dose omission issue [Unknown]
  - Off label use [Unknown]

NARRATIVE: CASE EVENT DATE: 20220401
